FAERS Safety Report 18362764 (Version 1)
Quarter: 2020Q4

REPORT INFORMATION
  Report Type: Other
  Country: FR (occurrence: FR)
  Receive Date: 20201008
  Receipt Date: 20201008
  Transmission Date: 20210114
  Serious: Yes (Hospitalization)
  Sender: FDA-Public Use
  Company Number: FR-VALIDUS PHARMACEUTICALS LLC-FR-2020VAL000804

PATIENT

DRUGS (3)
  1. LERCANIDIPINE HYDROCHLORIDE [Suspect]
     Active Substance: LERCANIDIPINE HYDROCHLORIDE
     Indication: POISONING DELIBERATE
     Dosage: 200 MG, TOTAL
     Route: 048
     Dates: start: 20200814, end: 20200814
  2. METOCLOPRAMIDE HYDROCHLORIDE. [Suspect]
     Active Substance: METOCLOPRAMIDE HYDROCHLORIDE
     Indication: POISONING DELIBERATE
     Dosage: 225 MG, TOTAL
     Route: 048
     Dates: start: 20200814, end: 20200814
  3. FUROSEMIDE. [Suspect]
     Active Substance: FUROSEMIDE
     Indication: POISONING DELIBERATE
     Dosage: 200 MG, TOTAL
     Route: 048
     Dates: start: 20200814, end: 20200814

REACTIONS (1)
  - Haemodynamic instability [Recovered/Resolved]

NARRATIVE: CASE EVENT DATE: 20200814
